FAERS Safety Report 8221924-3 (Version None)
Quarter: 2012Q1

REPORT INFORMATION
  Report Type: 
  Country: None (occurrence: None)
  Receive Date: 20120320
  Receipt Date: 20120308
  Transmission Date: 20120608
  Serious: Yes (Other)
  Sender: FDA-Public Use
  Company Number: LB-JNJFOC-20120300575

PATIENT
  Sex: Female

DRUGS (4)
  1. REMICADE [Suspect]
     Indication: CROHN'S DISEASE
     Route: 042
  2. HUMIRA [Suspect]
     Indication: ANKYLOSING SPONDYLITIS
  3. HUMIRA [Suspect]
     Indication: CROHN'S DISEASE
  4. REMICADE [Suspect]
     Indication: ANKYLOSING SPONDYLITIS
     Route: 042

REACTIONS (1)
  - MYELODYSPLASTIC SYNDROME [None]
